FAERS Safety Report 22050753 (Version 1)
Quarter: 2023Q1

REPORT INFORMATION
  Report Type: Spontaneous
  Country: US (occurrence: US)
  Receive Date: 20230301
  Receipt Date: 20230301
  Transmission Date: 20230417
  Serious: No
  Sender: FDA-Public Use
  Company Number: US-BRISTOL-MYERS SQUIBB COMPANY-2023-030218

PATIENT
  Age: 74 Year
  Sex: Male
  Weight: 100.43 kg

DRUGS (1)
  1. REVLIMID [Suspect]
     Active Substance: LENALIDOMIDE
     Indication: Product used for unknown indication
     Dosage: 21 DAYS ON, 7 DAYS OFF
     Route: 048
     Dates: start: 20141031, end: 20150602

REACTIONS (1)
  - Toxicity to various agents [Unknown]
